FAERS Safety Report 7598321-7 (Version None)
Quarter: 2011Q3

REPORT INFORMATION
  Report Type: 
  Country: None (occurrence: None)
  Receive Date: 20110708
  Receipt Date: 20110627
  Transmission Date: 20111222
  Serious: Yes (Hospitalization, Other)
  Sender: FDA-Public Use
  Company Number: PHHY2011FR57394

PATIENT
  Age: 83 Year
  Sex: Female

DRUGS (9)
  1. ZOMETA [Suspect]
     Indication: HYPERCALCAEMIA
     Dosage: 4 MG, UNK
     Dates: start: 20110322
  2. ESCITALOPRAM [Suspect]
  3. ROCEPHIN [Suspect]
     Indication: URINARY TRACT INFECTION
     Dosage: 1 G, QD
     Dates: start: 20110330, end: 20110414
  4. APROVEL [Concomitant]
  5. LASIX [Suspect]
     Indication: HYPERTENSION
     Dosage: 20 MG, QD
     Dates: start: 20110315, end: 20110414
  6. ASPIRIN [Concomitant]
  7. ESOMEPRAZOLE MAGNESIUM [Concomitant]
  8. CLONAZEPAM [Concomitant]
     Dates: start: 20110315
  9. XANAX [Concomitant]

REACTIONS (2)
  - NEUTROPENIA [None]
  - LEUKOPENIA [None]
